FAERS Safety Report 6587912-8 (Version None)
Quarter: 2010Q1

REPORT INFORMATION
  Report Type: 
  Country: None (occurrence: None)
  Receive Date: 20100218
  Receipt Date: 20100211
  Transmission Date: 20100710
  Serious: Yes (Hospitalization, Other)
  Sender: FDA-Public Use
  Company Number: US-BAYER-201013794NA

PATIENT
  Age: 65 Year
  Sex: Male

DRUGS (1)
  1. NEXAVAR [Suspect]
     Indication: HEPATIC NEOPLASM MALIGNANT
     Route: 048
     Dates: start: 20080101, end: 20090101

REACTIONS (9)
  - ABSCESS DRAINAGE [None]
  - ARTHRALGIA [None]
  - AURICULAR SWELLING [None]
  - EAR PAIN [None]
  - OEDEMA PERIPHERAL [None]
  - OSTEOMYELITIS [None]
  - RASH FOLLICULAR [None]
  - RASH PUSTULAR [None]
  - SUBCUTANEOUS ABSCESS [None]
